FAERS Safety Report 13068569 (Version 1)
Quarter: 2016Q4

REPORT INFORMATION
  Report Type: Spontaneous
  Country: US (occurrence: US)
  Receive Date: 20161227
  Receipt Date: 20161227
  Transmission Date: 20170207
  Serious: Yes (Other)
  Sender: FDA-Public Use
  Company Number: None

PATIENT
  Age: 71 Year
  Sex: Female
  Weight: 59.85 kg

DRUGS (15)
  1. ATORVASTATIN [Concomitant]
     Active Substance: ATORVASTATIN
  2. MULTIVITAMIN [Concomitant]
     Active Substance: VITAMINS
  3. FISH OIL [Concomitant]
     Active Substance: FISH OIL
  4. DILTIAZEM. [Concomitant]
     Active Substance: DILTIAZEM
  5. PRADAXA [Concomitant]
     Active Substance: DABIGATRAN ETEXILATE MESYLATE
  6. PROBIOTIC [Concomitant]
     Active Substance: PROBIOTICS NOS
  7. E [Concomitant]
  8. MACROBID [Concomitant]
     Active Substance: NITROFURANTOIN\NITROFURANTOIN MONOHYDRATE
  9. GINGER. [Concomitant]
     Active Substance: GINGER
  10. IRON [Concomitant]
     Active Substance: IRON
  11. DULCOLAX NOS [Concomitant]
     Active Substance: BISACODYL OR DOCUSATE SODIUM
  12. TRANSDERM SCOP [Suspect]
     Active Substance: SCOPOLAMINE
     Indication: MOTION SICKNESS
     Dosage: ?          QUANTITY:1 PATCH(ES);OTHER FREQUENCY:ONE PER 3 DAYS;?
     Route: 062
     Dates: start: 20161120, end: 20161129
  13. TUMS [Concomitant]
     Active Substance: CALCIUM CARBONATE
  14. LUNESTA [Concomitant]
     Active Substance: ESZOPICLONE
  15. VITAMIN D3 [Concomitant]
     Active Substance: CHOLECALCIFEROL

REACTIONS (2)
  - Renal disorder [None]
  - Urinary retention [None]

NARRATIVE: CASE EVENT DATE: 20161129
